FAERS Safety Report 20206483 (Version 5)
Quarter: 2025Q1

REPORT INFORMATION
  Report Type: Report from Study
  Country: AT (occurrence: AT)
  Receive Date: 20211220
  Receipt Date: 20250127
  Transmission Date: 20250409
  Serious: Yes (Hospitalization, Other)
  Sender: TAKEDA
  Company Number: AT-TAKEDA-2021TUS079366

PATIENT
  Age: 31 Year
  Sex: Female

DRUGS (3)
  1. VEDOLIZUMAB [Suspect]
     Active Substance: VEDOLIZUMAB
     Indication: Colitis ulcerative
  2. VEDOLIZUMAB [Suspect]
     Active Substance: VEDOLIZUMAB
     Indication: Colitis ulcerative
     Dosage: 108 MILLIGRAM, Q2WEEKS
     Dates: start: 20220120
  3. VEDOLIZUMAB [Suspect]
     Active Substance: VEDOLIZUMAB

REACTIONS (7)
  - Colitis ulcerative [Not Recovered/Not Resolved]
  - Gastrointestinal viral infection [Not Recovered/Not Resolved]
  - Lip swelling [Recovered/Resolved]
  - Pleural effusion [Recovered/Resolved]
  - Pneumonia [Recovered/Resolved]
  - Vertigo [Recovered/Resolved]
  - Inappropriate schedule of product administration [Unknown]

NARRATIVE: CASE EVENT DATE: 20220113
